FAERS Safety Report 18302126 (Version 3)
Quarter: 2020Q3

REPORT INFORMATION
  Report Type: Spontaneous
  Country: US (occurrence: US)
  Receive Date: 20200923
  Receipt Date: 20200928
  Transmission Date: 20201103
  Serious: Yes (Death, Hospitalization, Other)
  Sender: FDA-Public Use
  Company Number: US-ASTELLAS-2020US033208

PATIENT
  Sex: Male

DRUGS (1)
  1. PADCEV [Suspect]
     Active Substance: ENFORTUMAB VEDOTIN-EJFV
     Indication: TRANSITIONAL CELL CARCINOMA
     Dosage: UNK, UNKNOWN FREQ.
     Route: 065

REACTIONS (8)
  - Multiple organ dysfunction syndrome [Unknown]
  - Dermatitis exfoliative [Unknown]
  - Stevens-Johnson syndrome [Unknown]
  - Diabetes mellitus inadequate control [Unknown]
  - Febrile neutropenia [Unknown]
  - Dermatitis bullous [Unknown]
  - Tubulointerstitial nephritis [Unknown]
  - Death [Fatal]
